FAERS Safety Report 16868185 (Version 2)
Quarter: 2021Q2

REPORT INFORMATION
  Report Type: Spontaneous
  Country: JP (occurrence: JP)
  Receive Date: 20190930
  Receipt Date: 20210630
  Transmission Date: 20210716
  Serious: Yes (Other)
  Sender: FDA-Public Use
  Company Number: JP-BAYER-2019-172323

PATIENT
  Age: 76 Year
  Sex: Male

DRUGS (3)
  1. NEXAVAR [Suspect]
     Active Substance: SORAFENIB
     Indication: THYROID CANCER
     Dosage: DAILY DOSE 600 MG
     Route: 048
     Dates: end: 201902
  2. NEXAVAR [Suspect]
     Active Substance: SORAFENIB
     Indication: THYROID CANCER
     Dosage: DAILY DOSE 800 MG
     Route: 048
     Dates: start: 201902, end: 20191021
  3. NEXAVAR [Suspect]
     Active Substance: SORAFENIB
     Indication: THYROID CANCER
     Dosage: 200 MG, BID
     Route: 048
     Dates: start: 20180910

REACTIONS (3)
  - Off label use [None]
  - Protein urine present [Recovered/Resolved]
  - Thyroid cancer [None]

NARRATIVE: CASE EVENT DATE: 20180910
